FAERS Safety Report 8789134 (Version 1)
Quarter: 2012Q4

REPORT INFORMATION
  Report Type: Spontaneous
  Country: US (occurrence: None)
  Receive Date: 20120910
  Receipt Date: 20120910
  Transmission Date: 20130627
  Serious: Yes (Other)
  Sender: FDA-Public Use
  Company Number: None

PATIENT
  Age: 71 Year
  Sex: Male
  Weight: 87.09 kg

DRUGS (1)
  1. ATORVASTATIN [Suspect]
     Dates: start: 20120530, end: 20120604

REACTIONS (3)
  - Rash [None]
  - Rash [None]
  - Rash [None]
